APPROVED DRUG PRODUCT: FELBAMATE
Active Ingredient: FELBAMATE
Strength: 600MG
Dosage Form/Route: TABLET;ORAL
Application: A201680 | Product #002 | TE Code: AB
Applicant: AMNEAL PHARMACEUTICALS
Approved: Sep 13, 2011 | RLD: No | RS: No | Type: RX